FAERS Safety Report 15835079 (Version 2)
Quarter: 2019Q1

REPORT INFORMATION
  Report Type: Spontaneous
  Country: US (occurrence: US)
  Receive Date: 20190116
  Receipt Date: 20190116
  Transmission Date: 20190417
  Serious: Yes (Other)
  Sender: FDA-Public Use
  Company Number: US-GILEAD-2019-0384768

PATIENT
  Age: 51 Year
  Sex: Female

DRUGS (1)
  1. RANEXA [Suspect]
     Active Substance: RANOLAZINE
     Indication: PRODUCT USED FOR UNKNOWN INDICATION
     Dosage: UNK
     Route: 065
     Dates: start: 20130214

REACTIONS (4)
  - Stress [Unknown]
  - Intentional product use issue [Unknown]
  - Coronary artery occlusion [Not Recovered/Not Resolved]
  - Chest pain [Unknown]
